FAERS Safety Report 9894814 (Version 1)
Quarter: 2014Q1

REPORT INFORMATION
  Report Type: Spontaneous
  Country: US (occurrence: US)
  Receive Date: 20140213
  Receipt Date: 20140213
  Transmission Date: 20141002
  Serious: No
  Sender: FDA-Public Use
  Company Number: US-009507513-1402USA005577

PATIENT
  Sex: Male

DRUGS (2)
  1. PROVENTIL [Suspect]
     Dosage: 90 MCG/AS NEEDED
     Route: 055
  2. PROVENTIL [Suspect]
     Dosage: 90 MCG/TWO PUFFS, TWICE DAILY
     Route: 055

REACTIONS (3)
  - Inappropriate schedule of drug administration [Unknown]
  - Product quality issue [Unknown]
  - No adverse event [Unknown]
